FAERS Safety Report 23255752 (Version 1)
Quarter: 2023Q4

REPORT INFORMATION
  Report Type: Spontaneous
  Country: US (occurrence: None)
  Receive Date: 20231204
  Receipt Date: 20231204
  Transmission Date: 20240110
  Serious: No
  Sender: FDA-Public Use
  Company Number: US-Unichem Pharmaceuticals (USA) Inc-UCM202311-001380

PATIENT
  Sex: Male

DRUGS (2)
  1. AMITRIPTYLINE HYDROCHLORIDE [Suspect]
     Active Substance: AMITRIPTYLINE HYDROCHLORIDE
     Indication: Product used for unknown indication
     Dosage: UNKNOWN
  2. ATENOLOL [Suspect]
     Active Substance: ATENOLOL
     Indication: Pyrexia
     Dosage: UNKNOWN

REACTIONS (5)
  - Nasopharyngitis [Unknown]
  - Vomiting [Unknown]
  - Pyrexia [Recovering/Resolving]
  - Headache [Unknown]
  - Product use in unapproved indication [Unknown]
